FAERS Safety Report 4484252-8 (Version None)
Quarter: 2004Q4

REPORT INFORMATION
  Report Type: 
  Country: None (occurrence: None)
  Receive Date: 20041025
  Receipt Date: 20041016
  Transmission Date: 20050328
  Serious: Yes (Other)
  Sender: FDA-Public Use
  Company Number: GB-GLAXOSMITHKLINE-B0348427A

PATIENT
  Age: 1 Year
  Sex: Male
  Weight: 8.4 kg

DRUGS (10)
  1. RANITIDINE [Suspect]
     Indication: PROPHYLAXIS AGAINST GASTROINTESTINAL ULCER
     Dosage: 18MG TWICE PER DAY
     Route: 048
     Dates: start: 20040922, end: 20040924
  2. MORPHINE [Concomitant]
     Indication: ANALGESIC EFFECT
     Dosage: 2MG CYCLIC
     Route: 048
     Dates: start: 20040922
  3. CLONIDINE HCL [Concomitant]
     Indication: ANALGESIC EFFECT
     Dosage: 30MG THREE TIMES PER DAY
     Route: 048
     Dates: start: 20040922
  4. NYSTATIN [Concomitant]
     Indication: ORAL CANDIDIASIS
     Dosage: 1ML FOUR TIMES PER DAY
     Route: 048
     Dates: start: 20040922
  5. PARACETAMOL [Concomitant]
     Indication: ANALGESIC EFFECT
     Dosage: 200MG FOUR TIMES PER DAY
     Route: 048
     Dates: start: 20040922
  6. ZINC SULPHATE [Concomitant]
     Dosage: 125MG PER DAY
     Route: 065
     Dates: start: 20040922
  7. ABDEC [Concomitant]
     Dosage: .6ML PER DAY
     Route: 065
     Dates: start: 20040922
  8. SENNA [Concomitant]
     Dosage: 7.5ML PER DAY
     Route: 065
     Dates: start: 20040922
  9. LACTULOSE [Concomitant]
     Dosage: 4.5ML TWICE PER DAY
     Route: 065
     Dates: start: 20040922
  10. SCALD [Concomitant]
     Dates: start: 20040922

REACTIONS (3)
  - ALANINE AMINOTRANSFERASE INCREASED [None]
  - HEPATIC FUNCTION ABNORMAL [None]
  - HEPATOCELLULAR DAMAGE [None]
